FAERS Safety Report 7785406-5 (Version None)
Quarter: 2011Q3

REPORT INFORMATION
  Report Type: 
  Country: None (occurrence: None)
  Receive Date: 20110929
  Receipt Date: 20110919
  Transmission Date: 20111222
  Serious: Yes (Hospitalization)
  Sender: FDA-Public Use
  Company Number: NL-JNJFOC-20110612378

PATIENT
  Sex: Female

DRUGS (9)
  1. REMICADE [Suspect]
     Indication: CROHN'S DISEASE
     Route: 042
  2. REMICADE [Suspect]
     Route: 042
     Dates: start: 20090210
  3. REMICADE [Suspect]
     Route: 042
     Dates: start: 20101117
  4. REMICADE [Suspect]
     Route: 042
     Dates: start: 20101011
  5. MORPHINE [Concomitant]
  6. REMICADE [Suspect]
     Route: 042
     Dates: start: 20110516
  7. ACETAMINOPHEN [Concomitant]
  8. ANTIBIOTICS [Concomitant]
     Indication: CROHN'S DISEASE
  9. TRAMADOL [Concomitant]

REACTIONS (3)
  - CYST [None]
  - ANAL ABSCESS [None]
  - ANAL FISTULA [None]
